FAERS Safety Report 7106327-7 (Version None)
Quarter: 2010Q4

REPORT INFORMATION
  Report Type: 
  Country: None (occurrence: None)
  Receive Date: 20101116
  Receipt Date: 20101109
  Transmission Date: 20110411
  Serious: Yes (Other)
  Sender: FDA-Public Use
  Company Number: US-NAPPMUNDI-USA-2010-0048921

PATIENT
  Sex: Male

DRUGS (3)
  1. OXYCONTIN [Suspect]
     Indication: COMPLEX REGIONAL PAIN SYNDROME
     Dosage: 80 MG, SEE TEXT
     Dates: start: 20100901
  2. TOPAMAX [Concomitant]
     Indication: BLOOD PRESSURE
  3. SUMATRIPTAN SUCCINATE [Concomitant]
     Indication: PRODUCT USED FOR UNKNOWN INDICATION

REACTIONS (9)
  - DIZZINESS [None]
  - GASTROINTESTINAL DISORDER [None]
  - HEADACHE [None]
  - HYPERHIDROSIS [None]
  - MIGRAINE [None]
  - NAUSEA [None]
  - THERAPEUTIC RESPONSE DELAYED [None]
  - VOMITING [None]
  - WEIGHT DECREASED [None]
